FAERS Safety Report 6745748-9 (Version None)
Quarter: 2010Q2

REPORT INFORMATION
  Report Type: 
  Country: None (occurrence: None)
  Receive Date: 20100528
  Receipt Date: 20100517
  Transmission Date: 20101027
  Serious: Yes (Hospitalization, Other)
  Sender: FDA-Public Use
  Company Number: PHEH2008US00461

PATIENT
  Sex: Male
  Weight: 136.6 kg

DRUGS (37)
  1. AREDIA [Suspect]
     Dosage: 90 MG, QMO
     Route: 042
     Dates: start: 20000216, end: 20040101
  2. AREDIA [Suspect]
     Dosage: UNK
     Dates: start: 20050101
  3. AREDIA [Suspect]
     Dosage: UNK
     Dates: end: 20051111
  4. ZOMETA [Suspect]
     Dosage: 4 MG, UNK
     Dates: start: 20030110, end: 20030506
  5. ZOMETA [Suspect]
     Dosage: 4 MG, UNK
     Route: 042
     Dates: start: 20040101
  6. INH [Concomitant]
     Dosage: UNK
  7. PREDNISONE [Concomitant]
  8. FLURAZEPAM [Concomitant]
     Dosage: 30 MG
  9. DAPSONE [Concomitant]
     Dosage: 100 MG
  10. CIPRO [Concomitant]
     Dosage: 500 MG
  11. ALBUTEROL [Concomitant]
     Dosage: UNK
  12. CLOTRIMAZOLE ^POLFA^ [Concomitant]
     Dosage: UNK
  13. SEREVENT [Concomitant]
     Dosage: UNK
  14. FLUZONE [Concomitant]
     Dosage: UNK
  15. AMOXICILLIN [Concomitant]
     Dosage: 500 MG
  16. PENICILLIN VK [Concomitant]
     Dosage: UNK
  17. ESZOPICLONE [Concomitant]
     Dosage: 2 MG
  18. LOPROX [Concomitant]
     Dosage: UNK
  19. MYSOLINE [Concomitant]
     Dosage: UNK
  20. RANITIN [Concomitant]
     Dosage: UNK
  21. CARBIDOPA + LEVODOPA [Concomitant]
     Dosage: UNK
  22. ACYCLOVIR [Concomitant]
     Dosage: UNK
  23. TOBRADEX [Concomitant]
     Dosage: UNK
  24. BACITRACIN OPHTHALMIC OINTMENT [Concomitant]
     Dosage: UNK
  25. ZANTAC [Concomitant]
     Dosage: 150 MG BY MOUTH
  26. SINEMET [Concomitant]
     Dosage: UNK
  27. DALMANE [Concomitant]
     Dosage: 40 MG BY MOUTH AT BEDTIME
  28. EPOGEN [Concomitant]
     Dosage: UNK
  29. BACTRIM [Concomitant]
     Dosage: UNK
  30. FAMVIR                                  /NET/ [Concomitant]
     Dosage: UNK
  31. FLUCONAZOLE [Concomitant]
     Dosage: UNK
  32. OMEPRAZOLE [Concomitant]
     Dosage: UNK
  33. CALTRATE [Concomitant]
     Dosage: UNK
  34. VITAMIN D [Concomitant]
  35. ISONIAZID [Concomitant]
  36. LUNESTA [Concomitant]
  37. SELENIUM [Concomitant]

REACTIONS (47)
  - ABSCESS DRAINAGE [None]
  - ANAEMIA [None]
  - ANHEDONIA [None]
  - ANXIETY [None]
  - AORTIC DISORDER [None]
  - AZOTAEMIA [None]
  - BONE DISORDER [None]
  - BONE LESION [None]
  - CELLULITIS [None]
  - CYST [None]
  - DENTAL PROSTHESIS USER [None]
  - DENTURE WEARER [None]
  - DIVERTICULITIS [None]
  - EDENTULOUS [None]
  - ENDODONTIC PROCEDURE [None]
  - FATIGUE [None]
  - FISTULA [None]
  - GINGIVAL RECESSION [None]
  - GINGIVECTOMY [None]
  - GINGIVITIS [None]
  - GOITRE [None]
  - HEPATOMEGALY [None]
  - HYPOGAMMAGLOBULINAEMIA [None]
  - IMPAIRED HEALING [None]
  - INFECTION [None]
  - INJURY [None]
  - JAW OPERATION [None]
  - MASTICATION DISORDER [None]
  - MAXILLOFACIAL OPERATION [None]
  - NEUROPATHY PERIPHERAL [None]
  - OSTEITIS [None]
  - OSTEONECROSIS OF JAW [None]
  - OSTEOPENIA [None]
  - PAIN [None]
  - POLYP COLORECTAL [None]
  - POLYPECTOMY [None]
  - POOR PERSONAL HYGIENE [None]
  - RIB FRACTURE [None]
  - SKIN LESION [None]
  - SPINAL DEFORMITY [None]
  - SUTURE INSERTION [None]
  - SWELLING [None]
  - TONGUE DISORDER [None]
  - TOOTH ABSCESS [None]
  - TOOTH EXTRACTION [None]
  - WOUND DEHISCENCE [None]
  - X-RAY ABNORMAL [None]
